FAERS Safety Report 21244476 (Version 1)
Quarter: 2022Q3

REPORT INFORMATION
  Report Type: Spontaneous
  Country: US (occurrence: US)
  Receive Date: 20220823
  Receipt Date: 20220823
  Transmission Date: 20221026
  Serious: No
  Sender: FDA-Public Use
  Company Number: US-PERRIGO-21US030551

PATIENT
  Age: 43 Year
  Sex: Female
  Weight: 76.19 kg

DRUGS (1)
  1. NICOTINE POLACRILEX [Suspect]
     Active Substance: NICOTINE
     Indication: Smoking cessation therapy
     Dosage: 4 MG, EVERY 2 HOURS
     Route: 002
     Dates: start: 202110, end: 202110

REACTIONS (1)
  - Oral discomfort [Recovered/Resolved]

NARRATIVE: CASE EVENT DATE: 20211001
